FAERS Safety Report 15230860 (Version 1)
Quarter: 2018Q3

REPORT INFORMATION
  Report Type: Spontaneous
  Country: AU (occurrence: AU)
  Receive Date: 20180802
  Receipt Date: 20180802
  Transmission Date: 20181010
  Serious: Yes (Death)
  Sender: FDA-Public Use
  Company Number: AU-ACTELION-A-CH2018-172220

PATIENT
  Age: 49 Year
  Sex: Female

DRUGS (9)
  1. WARFARIN [Concomitant]
     Active Substance: WARFARIN
     Dosage: UNK
     Dates: start: 20180222
  2. BREO ELLIPTA [Concomitant]
     Active Substance: FLUTICASONE FUROATE\VILANTEROL TRIFENATATE
     Dosage: 1 PUFF, UNK
     Dates: start: 20170401
  3. PARACETAMOL [Concomitant]
     Active Substance: ACETAMINOPHEN
  4. MYCOPHENOLATE [Concomitant]
     Active Substance: MYCOPHENOLIC ACID
  5. OPSUMIT [Suspect]
     Active Substance: MACITENTAN
     Indication: PULMONARY ARTERIAL HYPERTENSION
     Dosage: 10 MG, OD
     Route: 048
     Dates: start: 20170509, end: 201806
  6. FRUSEMIDE [Concomitant]
     Active Substance: FUROSEMIDE
  7. VELETRI [Suspect]
     Active Substance: EPOPROSTENOL
     Indication: PULMONARY ARTERIAL HYPERTENSION
     Dosage: UNK
     Route: 042
     Dates: start: 20180508, end: 201806
  8. AMIODARONE [Concomitant]
     Active Substance: AMIODARONE
     Dosage: 200 MG, QD
     Dates: start: 20170506
  9. PREDNISOLONE. [Concomitant]
     Active Substance: PREDNISOLONE
     Dosage: 50 MG, QD

REACTIONS (4)
  - Pulmonary arterial hypertension [Fatal]
  - Systemic lupus erythematosus [Fatal]
  - Condition aggravated [Fatal]
  - Concomitant disease aggravated [Fatal]
